FAERS Safety Report 6779372-9 (Version None)
Quarter: 2010Q2

REPORT INFORMATION
  Report Type: 
  Country: None (occurrence: None)
  Receive Date: 20100618
  Receipt Date: 20100610
  Transmission Date: 20101027
  Serious: Yes (Hospitalization)
  Sender: FDA-Public Use
  Company Number: PHHO2010DE06384

PATIENT
  Sex: Male
  Weight: 77 kg

DRUGS (1)
  1. AFINITOR [Suspect]
     Indication: TUBEROUS SCLEROSIS
     Dosage: DOUBLE BLIND
     Route: 048
     Dates: start: 20091216

REACTIONS (6)
  - CONCOMITANT DISEASE PROGRESSION [None]
  - GOUTY ARTHRITIS [None]
  - JOINT EFFUSION [None]
  - OEDEMA PERIPHERAL [None]
  - PAIN [None]
  - SWELLING [None]
